FAERS Safety Report 17202920 (Version 3)
Quarter: 2020Q1

REPORT INFORMATION
  Report Type: Spontaneous
  Country: US (occurrence: US)
  Receive Date: 20191226
  Receipt Date: 20200221
  Transmission Date: 20200409
  Serious: No
  Sender: FDA-Public Use
  Company Number: US-PFIZER INC-2019553382

PATIENT
  Age: 61 Year
  Sex: Female
  Weight: 63.39 kg

DRUGS (3)
  1. IBRANCE [Suspect]
     Active Substance: PALBOCICLIB
     Dosage: 100 MG, 1X/DAY
     Dates: start: 201911
  2. CETUXIMAB. [Concomitant]
     Active Substance: CETUXIMAB
     Dosage: UNK
     Dates: start: 2018
  3. IBRANCE [Suspect]
     Active Substance: PALBOCICLIB
     Indication: LIP AND/OR ORAL CAVITY CANCER
     Dosage: 125 MG, UNK

REACTIONS (3)
  - Product use in unapproved indication [Unknown]
  - Blood count abnormal [Recovered/Resolved]
  - Off label use [Unknown]

NARRATIVE: CASE EVENT DATE: 201911
